FAERS Safety Report 7583151-2 (Version None)
Quarter: 2011Q2

REPORT INFORMATION
  Report Type: 
  Country: None (occurrence: None)
  Receive Date: 20110623
  Receipt Date: 20110608
  Transmission Date: 20111010
  Serious: Yes (Hospitalization)
  Sender: FDA-Public Use
  Company Number: DSA_46880_2011

PATIENT
  Age: 44 Year
  Sex: Male

DRUGS (2)
  1. ENALAPRIL MALEATE [Suspect]
     Indication: ESSENTIAL HYPERTENSION
     Dosage: (DF ORAL)
     Route: 048
     Dates: start: 20090101, end: 20110104
  2. METOPROLOL TARTRATE [Concomitant]

REACTIONS (3)
  - URTICARIA [None]
  - THROAT IRRITATION [None]
  - DYSPNOEA [None]
